FAERS Safety Report 12593629 (Version 1)
Quarter: 2016Q3

REPORT INFORMATION
  Report Type: Spontaneous
  Country: US (occurrence: US)
  Receive Date: 20160726
  Receipt Date: 20160726
  Transmission Date: 20161109
  Serious: No
  Sender: FDA-Public Use
  Company Number: US-ELI_LILLY_AND_COMPANY-US201607008082

PATIENT
  Sex: Female

DRUGS (7)
  1. AMLODIPINO                         /00972401/ [Concomitant]
     Active Substance: AMLODIPINE BESYLATE
     Indication: BLOOD PRESSURE INCREASED
  2. PRAVASTATIN. [Concomitant]
     Active Substance: PRAVASTATIN
     Indication: BLOOD CHOLESTEROL
  3. HUMALOG MIX75/25 [Suspect]
     Active Substance: INSULIN LISPRO
     Indication: TYPE 2 DIABETES MELLITUS
     Dosage: 12 U, EACH MORNING
     Route: 065
     Dates: start: 201512
  4. HUMALOG MIX75/25 [Suspect]
     Active Substance: INSULIN LISPRO
     Dosage: 10 U, EACH EVENING
     Route: 065
     Dates: start: 201512
  5. HUMALOG MIX75/25 [Suspect]
     Active Substance: INSULIN LISPRO
     Dosage: 10 U, EACH EVENING
     Route: 065
     Dates: start: 201512
  6. LOSARTAN. [Concomitant]
     Active Substance: LOSARTAN
  7. HUMALOG MIX75/25 [Suspect]
     Active Substance: INSULIN LISPRO
     Dosage: 12 U, EACH MORNING
     Route: 065
     Dates: start: 201512

REACTIONS (1)
  - Blood pressure increased [Unknown]
